FAERS Safety Report 8759776 (Version 3)
Quarter: 2012Q4

REPORT INFORMATION
  Report Type: 
  Country: US (occurrence: US)
  Receive Date: 20120829
  Receipt Date: 20121128
  Transmission Date: 20130627
  Serious: Yes (Other)
  Sender: FDA-Public Use
  Company Number: US-ASTRAZENECA-2012SE60506

PATIENT
  Age: 65 Year
  Sex: Female

DRUGS (5)
  1. ACCOLATE [Suspect]
     Route: 048
  2. ADVAIR [Concomitant]
  3. LIPITOR [Concomitant]
  4. LEVOTHYROXINE [Concomitant]
  5. CAPTOPRIL [Concomitant]

REACTIONS (2)
  - Cataract nuclear [Recovered/Resolved]
  - Drug dose omission [Unknown]
